FAERS Safety Report 7912653-1 (Version None)
Quarter: 2011Q4

REPORT INFORMATION
  Report Type: 
  Country: None (occurrence: None)
  Receive Date: 20111114
  Receipt Date: 20111102
  Transmission Date: 20120403
  Serious: Yes (Hospitalization)
  Sender: FDA-Public Use
  Company Number: JP-ROCHE-646248

PATIENT
  Sex: Female

DRUGS (15)
  1. ACTEMRA [Suspect]
     Route: 041
     Dates: start: 20081117, end: 20081117
  2. PREDNISOLONE [Suspect]
     Indication: RHEUMATOID ARTHRITIS
     Dosage: DOSE FORM: PERORAL AGENT
     Route: 048
  3. PURSENNID [Concomitant]
     Route: 048
  4. OMEPRAZOLE [Concomitant]
     Dosage: FORM: ENTERIC COATING DRUG
     Route: 048
  5. ACTEMRA [Suspect]
     Route: 041
     Dates: start: 20081020, end: 20081020
  6. ZOLPIDEM [Concomitant]
     Dosage: DRUG: MYSLEE(ZOLPIDEM TARTRATE)
     Route: 048
  7. VOLTAREN-XR [Concomitant]
     Dosage: DRUG: VOLTAREN SR(DICLOFENAC SODIUM). DOSE FORM: SUSTAINED RELEASE CAPSULE
     Route: 048
  8. METHOTREXATE [Concomitant]
     Route: 048
  9. RABEPRAZOLE SODIUM [Concomitant]
     Dosage: DRUG: PARIET(SODIUM RABEPRAZOLE)
     Route: 048
  10. ACTEMRA [Suspect]
     Route: 041
     Dates: start: 20090105, end: 20090105
  11. ACTEMRA [Suspect]
     Dosage: INFUSION RATE DECREASED
     Route: 041
  12. ACTEMRA [Suspect]
     Indication: RHEUMATOID ARTHRITIS
     Route: 041
     Dates: start: 20080920, end: 20080920
  13. NORVASC [Concomitant]
     Dosage: DRUG: NORVASC(AMLODIPINE BESILATE)
     Route: 048
  14. ACTEMRA [Suspect]
     Route: 041
     Dates: start: 20081208, end: 20081208
  15. FOLIC ACID [Concomitant]
     Dosage: DOSE FORM: PERORAL AGENT
     Route: 048

REACTIONS (3)
  - SKIN ULCER [None]
  - OSTEOMYELITIS [None]
  - BLOOD TRIGLYCERIDES INCREASED [None]
